FAERS Safety Report 10358362 (Version 1)
Quarter: 2014Q3

REPORT INFORMATION
  Report Type: Spontaneous
  Country: KR (occurrence: KR)
  Receive Date: 20140801
  Receipt Date: 20140801
  Transmission Date: 20150326
  Serious: Yes (Death)
  Sender: FDA-Public Use
  Company Number: KR-TAKEDA-2014TJP010167

PATIENT
  Age: 22 Year
  Sex: Male

DRUGS (4)
  1. REBAMIPIDE [Concomitant]
     Active Substance: REBAMIPIDE
  2. OCTYLONIUM BROMIDE [Concomitant]
  3. TIROPRAMIDE HCL [Concomitant]
  4. LANSTON [Suspect]
     Active Substance: LANSOPRAZOLE
     Indication: PRODUCT USED FOR UNKNOWN INDICATION
     Dosage: 2C
     Route: 048
     Dates: start: 20130724, end: 20130806

REACTIONS (1)
  - Death [Fatal]

NARRATIVE: CASE EVENT DATE: 20131010
